FAERS Safety Report 18285525 (Version 1)
Quarter: 2020Q3

REPORT INFORMATION
  Report Type: Spontaneous
  Country: HR (occurrence: HR)
  Receive Date: 20200919
  Receipt Date: 20200919
  Transmission Date: 20201103
  Serious: Yes (Death, Hospitalization, Other)
  Sender: FDA-Public Use
  Company Number: HR-ABBVIE-20K-216-3572211-00

PATIENT
  Age: 81 Year

DRUGS (4)
  1. VENCLYXTO [Suspect]
     Active Substance: VENETOCLAX
     Indication: CHRONIC LYMPHOCYTIC LEUKAEMIA
     Dosage: RAMP?UP
     Route: 048
     Dates: start: 20200323, end: 2020
  2. RITUXIMAB. [Suspect]
     Active Substance: RITUXIMAB
     Indication: CHRONIC LYMPHOCYTIC LEUKAEMIA
     Route: 065
     Dates: start: 20200323, end: 2020
  3. DEXAMETHASONE. [Concomitant]
     Active Substance: DEXAMETHASONE
     Indication: PRODUCT USED FOR UNKNOWN INDICATION
     Dosage: 20 MG FOR 4 DAYS, THEN PAUSE FOR 4 DAYS
  4. VENCLYXTO [Suspect]
     Active Substance: VENETOCLAX
     Route: 048
     Dates: start: 2020, end: 20200727

REACTIONS (13)
  - Death [Fatal]
  - Neutropenia [Unknown]
  - Richter^s syndrome [Unknown]
  - Dyspnoea exertional [Unknown]
  - Oedema peripheral [Unknown]
  - Asthenia [Unknown]
  - Splenomegaly [Unknown]
  - Lymphadenopathy [Unknown]
  - Decreased appetite [Unknown]
  - Pyrexia [Unknown]
  - Anaemia [Unknown]
  - Lymphocytosis [Unknown]
  - Peripheral swelling [Unknown]

NARRATIVE: CASE EVENT DATE: 2020
